FAERS Safety Report 6934893-0 (Version None)
Quarter: 2010Q3

REPORT INFORMATION
  Report Type: 
  Country: None (occurrence: None)
  Receive Date: 20100821
  Receipt Date: 20100806
  Transmission Date: 20110219
  Serious: Yes (Other)
  Sender: FDA-Public Use
  Company Number: PHHY2010US51862

PATIENT
  Sex: Female

DRUGS (5)
  1. SANDOSTATIN [Suspect]
     Dosage: UNK
  2. LEVOTHROID [Concomitant]
     Dosage: UNK
  3. CLONADINE PATCHES [Concomitant]
     Dosage: 0.2
     Route: 062
  4. RAMIPRIL [Concomitant]
     Dosage: UNK
  5. LORAZEPAM [Concomitant]
     Dosage: 0.5

REACTIONS (15)
  - ANAEMIA [None]
  - BACTERAEMIA [None]
  - CATARACT [None]
  - DYSPHAGIA [None]
  - GASTROINTESTINAL DISORDER [None]
  - HIP FRACTURE [None]
  - MALAISE [None]
  - MUSCLE SPASMS [None]
  - NAUSEA [None]
  - NEUROPATHY PERIPHERAL [None]
  - PAIN [None]
  - PARENTERAL NUTRITION [None]
  - ROAD TRAFFIC ACCIDENT [None]
  - SPLENIC RUPTURE [None]
  - WEIGHT DECREASED [None]
